FAERS Safety Report 9779589 (Version 1)
Quarter: 2013Q4

REPORT INFORMATION
  Report Type: Spontaneous
  Country: US (occurrence: US)
  Receive Date: 20131223
  Receipt Date: 20131223
  Transmission Date: 20140711
  Serious: No
  Sender: FDA-Public Use
  Company Number: US-PFIZER INC-2013363667

PATIENT
  Sex: Female

DRUGS (1)
  1. PREMARIN [Suspect]
     Dosage: UNK
     Dates: start: 1979

REACTIONS (9)
  - Memory impairment [Unknown]
  - Anger [Unknown]
  - Back disorder [Unknown]
  - Collagen disorder [Unknown]
  - Bone pain [Unknown]
  - Spinal pain [Unknown]
  - Vulvovaginal dryness [Unknown]
  - Insomnia [Unknown]
  - Blood pressure increased [Unknown]
